FAERS Safety Report 25172239 (Version 6)
Quarter: 2025Q4

REPORT INFORMATION
  Report Type: Spontaneous
  Country: CA (occurrence: CA)
  Receive Date: 20250408
  Receipt Date: 20251011
  Transmission Date: 20260118
  Serious: Yes (Hospitalization, Other)
  Sender: CELLTRION
  Company Number: CA-PFIZER INC-202500035649

PATIENT

DRUGS (6)
  1. INFLECTRA [Suspect]
     Active Substance: INFLIXIMAB-DYYB
     Indication: Colitis ulcerative
     Dosage: 830 MG, INDUCTION WEEKS 0, 2, 6 MAINTENANCE Q8 WEEKS - HOSPITAL START
     Route: 042
     Dates: start: 20250219
  2. INFLECTRA [Suspect]
     Active Substance: INFLIXIMAB-DYYB
     Dosage: 830 MG, INDUCTION WEEKS 0, 2, 6 MAINTENANCE Q8 WEEKS - HOSPITAL START
     Route: 042
     Dates: start: 20250306
  3. INFLECTRA [Suspect]
     Active Substance: INFLIXIMAB-DYYB
     Dosage: 830 MG, INDUCTION WEEKS 0, 2, 6 MAINTENANCE Q 8 WEEKS - HOSPITAL START
     Route: 042
     Dates: start: 20250403
  4. INFLECTRA [Suspect]
     Active Substance: INFLIXIMAB-DYYB
     Dosage: 830 MG, INDUCTION WEEKS 0, 2, 6 MAINTENANCE Q 8 WEEKS - HOSPITAL START
     Route: 042
     Dates: start: 20250529
  5. INFLECTRA [Suspect]
     Active Substance: INFLIXIMAB-DYYB
     Dosage: 830 MG, AFTER 9 WEEKS AND 6 DAYS (INDUCTION WEEKS 0, 2, 6 MAINTENANCE Q 8 WEEKS - HOSPITAL START)
     Route: 042
     Dates: start: 20250806
  6. PREDNISONE [Concomitant]
     Active Substance: PREDNISONE
     Dosage: UNK

REACTIONS (6)
  - Intestinal obstruction [Recovering/Resolving]
  - Joint injury [Unknown]
  - Condition aggravated [Not Recovered/Not Resolved]
  - Off label use [Unknown]
  - Intentional product use issue [Unknown]
  - Inappropriate schedule of product administration [Unknown]

NARRATIVE: CASE EVENT DATE: 20250301
